FAERS Safety Report 22260269 (Version 3)
Quarter: 2024Q4

REPORT INFORMATION
  Report Type: Spontaneous
  Country: US (occurrence: US)
  Receive Date: 20230427
  Receipt Date: 20241023
  Transmission Date: 20250115
  Serious: No
  Sender: SUNOVION
  Company Number: US-MYOVANT SCIENCES GMBH-2023MYSCI0300415

PATIENT

DRUGS (23)
  1. ORGOVYX [Suspect]
     Active Substance: RELUGOLIX
     Indication: Prostate cancer
     Dosage: 360 MILLIGRAM, ONE TIME DOSE
     Route: 048
     Dates: start: 20230303, end: 20230303
  2. ORGOVYX [Suspect]
     Active Substance: RELUGOLIX
     Dosage: 120 MILLIGRAM, QD
     Route: 048
     Dates: start: 20230304
  3. ORGOVYX [Suspect]
     Active Substance: RELUGOLIX
     Dosage: UNK
  4. NUBEQA [Suspect]
     Active Substance: DAROLUTAMIDE
     Dosage: 600 MG, BID
     Route: 065
  5. ADVIL                              /00109201/ [Concomitant]
     Indication: Product used for unknown indication
     Dosage: UNK
     Route: 065
  6. CASODEX [Concomitant]
     Active Substance: BICALUTAMIDE
     Indication: Product used for unknown indication
     Dosage: UNK
     Route: 065
  7. UNSPECIFIED INGREDIENT [Concomitant]
     Active Substance: UNSPECIFIED INGREDIENT
     Indication: Product used for unknown indication
     Dosage: UNK
     Route: 065
  8. ELIQUIS [Concomitant]
     Active Substance: APIXABAN
     Indication: Product used for unknown indication
     Dosage: UNK
     Route: 065
  9. FENBENDAZOLE [Concomitant]
     Active Substance: FENBENDAZOLE
     Indication: Product used for unknown indication
     Dosage: UNK
     Route: 065
  10. GINGER                             /01646602/ [Concomitant]
     Indication: Product used for unknown indication
     Dosage: UNK
     Route: 065
  11. MAGNESIUM [Concomitant]
     Active Substance: MAGNESIUM
     Indication: Product used for unknown indication
     Dosage: UNK
     Route: 065
  12. MELATONIN [Concomitant]
     Active Substance: MELATONIN
     Indication: Product used for unknown indication
     Dosage: UNK
     Route: 065
  13. METFORMIN [Concomitant]
     Active Substance: METFORMIN HYDROCHLORIDE
     Indication: Product used for unknown indication
     Dosage: UNK
     Route: 065
  14. OXYCODONE [Concomitant]
     Active Substance: OXYCODONE
     Indication: Product used for unknown indication
     Dosage: UNK
     Route: 065
  15. SELENIUM [Concomitant]
     Active Substance: SELENIUM
     Indication: Product used for unknown indication
     Dosage: UNK
     Route: 065
  16. TADALAFIL [Concomitant]
     Active Substance: TADALAFIL
     Indication: Product used for unknown indication
     Dosage: UNK
     Route: 065
  17. TAMSULOSIN [Concomitant]
     Active Substance: TAMSULOSIN
     Indication: Product used for unknown indication
     Dosage: UNK
     Route: 065
  18. MINERALS [Concomitant]
     Active Substance: MINERALS
     Indication: Product used for unknown indication
     Dosage: UNK
     Route: 065
  19. TURMERIC                           /01079602/ [Concomitant]
     Indication: Product used for unknown indication
     Dosage: UNK
     Route: 065
  20. URSOLIC ACID [Concomitant]
     Active Substance: URSOLIC ACID
     Indication: Product used for unknown indication
     Dosage: UNK
     Route: 065
  21. VITAMIN C [Concomitant]
     Active Substance: ASCORBIC ACID
     Indication: Product used for unknown indication
     Dosage: UNK
     Route: 065
  22. VITAMIN D3 [Concomitant]
     Active Substance: CHOLECALCIFEROL
     Indication: Product used for unknown indication
     Dosage: UNK
     Route: 065
  23. MEBENDAZOLE [Concomitant]
     Active Substance: MEBENDAZOLE
     Indication: Product used for unknown indication
     Dosage: UNK
     Route: 065

REACTIONS (5)
  - Neuropathy peripheral [Unknown]
  - Muscular weakness [Unknown]
  - Fall [Recovered/Resolved]
  - Feeling abnormal [Unknown]
  - Dizziness [Unknown]

NARRATIVE: CASE EVENT DATE: 20230301
